FAERS Safety Report 20936974 (Version 1)
Quarter: 2022Q2

REPORT INFORMATION
  Report Type: Spontaneous
  Country: US (occurrence: None)
  Receive Date: 20220609
  Receipt Date: 20220609
  Transmission Date: 20220721
  Serious: No
  Sender: FDA-Public Use
  Company Number: US-ROCHE-2885977

PATIENT
  Age: 76 Year
  Sex: Female
  Weight: 65.376 kg

DRUGS (5)
  1. ACTEMRA [Suspect]
     Active Substance: TOCILIZUMAB
     Indication: Myalgia
     Dosage: ONGOING:YES
     Route: 058
     Dates: start: 20210721
  2. ACTEMRA [Suspect]
     Active Substance: TOCILIZUMAB
     Indication: Myalgia
  3. PREDNISONE [Concomitant]
     Active Substance: PREDNISONE
     Indication: Myalgia
     Dosage: YES
     Route: 048
  4. PROLIA [Concomitant]
     Active Substance: DENOSUMAB
     Indication: Osteoporosis
     Dosage: YES
     Route: 058
  5. LASIX [Concomitant]
     Active Substance: FUROSEMIDE
     Indication: Giant cell arteritis
     Dosage: YES
     Route: 048

REACTIONS (2)
  - Wrong technique in product usage process [Unknown]
  - Off label use [Unknown]

NARRATIVE: CASE EVENT DATE: 20210721
